FAERS Safety Report 5336562-X (Version None)
Quarter: 2007Q2

REPORT INFORMATION
  Report Type: 
  Country: None (occurrence: None)
  Receive Date: 20070524
  Receipt Date: 20070514
  Transmission Date: 20071010
  Serious: Yes (Other)
  Sender: FDA-Public Use
  Company Number: 2007-02345

PATIENT
  Age: 60 Year
  Sex: Female

DRUGS (5)
  1. SULFASALAZINE [Suspect]
     Indication: ARTHRITIS
     Dosage: ORAL
     Route: 048
     Dates: start: 20060101, end: 20060101
  2. AVALIDE [Suspect]
     Indication: ARTHRITIS
     Dosage: X 6 MONTHS, ORAL
     Route: 048
     Dates: start: 20060101, end: 20060101
  3. VIOXX [Concomitant]
  4. LEVOXYL [Concomitant]
  5. ASPIRIN [Concomitant]

REACTIONS (1)
  - ANGLE CLOSURE GLAUCOMA [None]
